FAERS Safety Report 4794038-2 (Version None)
Quarter: 2005Q4

REPORT INFORMATION
  Report Type: 
  Country: None (occurrence: None)
  Receive Date: 20051011
  Receipt Date: 20050928
  Transmission Date: 20060501
  Serious: Yes (Hospitalization)
  Sender: FDA-Public Use
  Company Number: JP-MERCK-0510USA00443

PATIENT
  Age: 54 Year
  Sex: Female

DRUGS (5)
  1. SINGULAIR [Suspect]
     Indication: ASTHMA
     Route: 048
     Dates: start: 20050831, end: 20050921
  2. MUCODYNE [Concomitant]
     Indication: ASTHMA
     Route: 048
     Dates: start: 20050825, end: 20050921
  3. QVAR 40 [Concomitant]
     Indication: ASTHMA
     Route: 055
     Dates: start: 20050825
  4. MUCOSOLVAN [Concomitant]
     Indication: ASTHMA
     Route: 048
     Dates: start: 20050825, end: 20050921
  5. SEREVENT [Concomitant]
     Indication: ASTHMA
     Route: 055
     Dates: start: 20050825

REACTIONS (1)
  - HEPATIC FUNCTION ABNORMAL [None]
